FAERS Safety Report 7001488-2 (Version None)
Quarter: 2010Q3

REPORT INFORMATION
  Report Type: 
  Country: None (occurrence: None)
  Receive Date: 20100920
  Receipt Date: 20100909
  Transmission Date: 20110219
  Serious: Yes (Other)
  Sender: FDA-Public Use
  Company Number: BR-ROCHE-726353

PATIENT
  Sex: Female
  Weight: 76 kg

DRUGS (13)
  1. TOCILIZUMAB [Suspect]
     Indication: RHEUMATOID ARTHRITIS
     Route: 042
     Dates: start: 20100311, end: 20100311
  2. TOCILIZUMAB [Suspect]
     Route: 042
     Dates: start: 20100407, end: 20100407
  3. TOCILIZUMAB [Suspect]
     Route: 042
     Dates: start: 20100507, end: 20100507
  4. TOCILIZUMAB [Suspect]
     Route: 042
     Dates: start: 20100607, end: 20100607
  5. TOCILIZUMAB [Suspect]
     Route: 042
     Dates: start: 20100707, end: 20100707
  6. TOCILIZUMAB [Suspect]
     Route: 042
     Dates: start: 20100816, end: 20100816
  7. PREDNISONE [Concomitant]
  8. SIMVASTATIN [Concomitant]
  9. NATRILIX [Concomitant]
  10. METFORMIN HYDROCHLORIDE [Concomitant]
  11. AMLODIPINE BESYLATE [Concomitant]
  12. LOSACOR [Concomitant]
  13. FLUOXETINE [Concomitant]

REACTIONS (3)
  - DIABETES MELLITUS [None]
  - DYSLIPIDAEMIA [None]
  - WEIGHT INCREASED [None]
